FAERS Safety Report 9314856 (Version 2)
Quarter: 2013Q3

REPORT INFORMATION
  Report Type: Spontaneous
  Country: US (occurrence: US)
  Receive Date: 20130529
  Receipt Date: 20130714
  Transmission Date: 20140515
  Serious: No
  Sender: FDA-Public Use
  Company Number: US-TEVA-408360USA

PATIENT
  Age: 74 Year
  Sex: Female

DRUGS (1)
  1. NUVIGIL [Suspect]
     Indication: SOMNOLENCE
     Route: 048

REACTIONS (3)
  - Oxygen consumption decreased [Unknown]
  - Drug administration error [Unknown]
  - Sleep apnoea syndrome [Unknown]
